FAERS Safety Report 7474307-8 (Version None)
Quarter: 2011Q2

REPORT INFORMATION
  Report Type: 
  Country: None (occurrence: None)
  Receive Date: 20110511
  Receipt Date: 20110427
  Transmission Date: 20111010
  Serious: Yes (Other)
  Sender: FDA-Public Use
  Company Number: CA-ELI_LILLY_AND_COMPANY-CA201103005472

PATIENT
  Age: 61 Year
  Sex: Female

DRUGS (11)
  1. CYMBALTA [Concomitant]
  2. TOPAMAX [Concomitant]
  3. SYNTHROID [Concomitant]
  4. ASACOL [Concomitant]
  5. PARIET [Concomitant]
  6. FORTEO [Suspect]
     Indication: OSTEOPOROSIS
     Dosage: 20 UG, QD
     Route: 058
     Dates: start: 20101117, end: 20110215
  7. CLONAZEPAM [Concomitant]
  8. PRILOSEC [Concomitant]
  9. VITAMIN D [Concomitant]
  10. TYLENOL W/ CODEINE NO. 3 [Concomitant]
  11. QUETIAPINE [Concomitant]

REACTIONS (1)
  - LARGE CELL CARCINOMA OF THE RESPIRATORY TRACT STAGE UNSPECIFIED [None]
